FAERS Safety Report 17076307 (Version 2)
Quarter: 2019Q4

REPORT INFORMATION
  Report Type: Report from Study
  Country: PA (occurrence: PA)
  Receive Date: 20191126
  Receipt Date: 20191223
  Transmission Date: 20200122
  Serious: Yes (Disabling)
  Sender: FDA-Public Use
  Company Number: PA-SA-2019SA324340

PATIENT
  Age: 76 Year
  Sex: Female

DRUGS (4)
  1. IRBESARTAN. [Suspect]
     Active Substance: IRBESARTAN
     Dosage: 1 UNK, QD
     Route: 048
     Dates: start: 201911
  2. CAFIASPIRINA [Concomitant]
     Active Substance: ASPIRIN\CAFFEINE
     Indication: PRODUCT USED FOR UNKNOWN INDICATION
     Dosage: 1 DF, 1 TABLET
     Route: 048
  3. IRBESARTAN. [Suspect]
     Active Substance: IRBESARTAN
     Indication: HYPERTENSION
     Dosage: 1 DF, QD (1 TABLET)
     Route: 048
     Dates: start: 2014
  4. IRBESARTAN. [Suspect]
     Active Substance: IRBESARTAN
     Dosage: 2 UNK
     Route: 048
     Dates: end: 201911

REACTIONS (10)
  - Depression [Recovering/Resolving]
  - Hypertension [Recovering/Resolving]
  - Ocular hyperaemia [Recovered/Resolved]
  - Intentional product misuse [Unknown]
  - Overdose [Unknown]
  - Parkinson^s disease [Recovering/Resolving]
  - Movement disorder [Recovering/Resolving]
  - Product use in unapproved indication [Unknown]
  - Cerebrovascular accident [Recovering/Resolving]
  - Insomnia [Not Recovered/Not Resolved]

NARRATIVE: CASE EVENT DATE: 2014
